FAERS Safety Report 24535064 (Version 1)
Quarter: 2024Q4

REPORT INFORMATION
  Report Type: Report from Study
  Country: BE (occurrence: BE)
  Receive Date: 20241022
  Receipt Date: 20241022
  Transmission Date: 20250115
  Serious: Yes (Other)
  Sender: ABBVIE
  Company Number: BE-ABBVIE-5970038

PATIENT
  Sex: Male
  Weight: 87 kg

DRUGS (13)
  1. CARBIDOPA\LEVODOPA [Suspect]
     Active Substance: CARBIDOPA\LEVODOPA
     Indication: Parkinson^s disease
     Dosage: MD: 1.5+3.0ML, CD: 3.7ML/H, ED: 2.80ML, CND: 2.5ML/H DURING 24 HOURS
     Route: 050
     Dates: start: 20230920
  2. CARBIDOPA\LEVODOPA [Suspect]
     Active Substance: CARBIDOPA\LEVODOPA
     Route: 050
  3. CARBIDOPA\LEVODOPA [Suspect]
     Active Substance: CARBIDOPA\LEVODOPA
     Route: 050
     Dates: start: 20240917
  4. Daflon [Concomitant]
     Indication: Product used for unknown indication
     Dosage: FORM STRENGTH: 500 MILLIGRAM?FREQUENCY TEXT: AT 7 A.M. - 7 P.M
  5. TAMSULOSIN [Concomitant]
     Active Substance: TAMSULOSIN
     Indication: Product used for unknown indication
     Dosage: FORM STRENGTH: 0.4 MILLIGRAM?FREQUENCY TEXT: AT 10 AM
  6. STALEVO [Concomitant]
     Active Substance: CARBIDOPA\ENTACAPONE\LEVODOPA
     Indication: Product used for unknown indication
     Dosage: FORM STRENGTH: 100 MILLIGRAM?FREQUENCY TEXT: AT 4 P.M, 7 P.M.
  7. STALEVO [Concomitant]
     Active Substance: CARBIDOPA\ENTACAPONE\LEVODOPA
     Indication: Product used for unknown indication
     Dosage: FORM STRENGTH: 150 MILLIGRAM?FREQUENCY TEXT: AT 7 A.M. - 10 A.M. - 1 P.M.
  8. SYMMETREL [Concomitant]
     Active Substance: AMANTADINE HYDROCHLORIDE
     Indication: Product used for unknown indication
     Dosage: FORM STRENGTH: 100 MILLIGRAM?FREQUENCY TEXT: AT 10 AM
  9. AZILECT [Concomitant]
     Active Substance: RASAGILINE MESYLATE
     Indication: Product used for unknown indication
     Dosage: FORM STRENGTH: 1 MILLIGRAM?FREQUENCY TEXT: AT 7AM
  10. REQUIP [Concomitant]
     Active Substance: ROPINIROLE HYDROCHLORIDE
     Indication: Product used for unknown indication
     Dosage: FORM STRENGTH: 2 MILLIGRAM?FREQUENCY TEXT: AT 7AM
  11. REQUIP [Concomitant]
     Active Substance: ROPINIROLE HYDROCHLORIDE
     Indication: Product used for unknown indication
     Dosage: FORM STRENGTH: 4 MILLIGRAM?FREQUENCY TEXT: AT 7AM
  12. VESICARE [Concomitant]
     Active Substance: SOLIFENACIN SUCCINATE
     Indication: Product used for unknown indication
     Dosage: FREQUENCY TEXT: AT 7 A.M. - 7 P.M
  13. BENSERAZIDE\LEVODOPA [Concomitant]
     Active Substance: BENSERAZIDE\LEVODOPA
     Indication: Product used for unknown indication
     Dosage: FORM STRENGTH: 125 MILLIGRAM?FREQUENCY TEXT: AT 6AM

REACTIONS (4)
  - Rehabilitation therapy [Unknown]
  - Off label use [Recovered/Resolved]
  - Device occlusion [Recovered/Resolved with Sequelae]
  - Device issue [Unknown]
